FAERS Safety Report 16924903 (Version 1)
Quarter: 2019Q4

REPORT INFORMATION
  Report Type: Spontaneous
  Country: US (occurrence: US)
  Receive Date: 20191016
  Receipt Date: 20191016
  Transmission Date: 20200122
  Serious: No
  Sender: FDA-Public Use
  Company Number: US-PFIZER INC-2019424970

PATIENT
  Age: 72 Year
  Sex: Female
  Weight: 49.89 kg

DRUGS (2)
  1. EXEMESTANE. [Suspect]
     Active Substance: EXEMESTANE
     Indication: BREAST CANCER
     Dosage: 25 MG, 1X/DAY (25 MG /QD (ONCE DAILY))
     Dates: start: 20190829, end: 20190831
  2. EXEMESTANE. [Suspect]
     Active Substance: EXEMESTANE
     Dosage: 25 MG, 1X/DAY (25 MG /QD (ONCE DAILY))
     Dates: start: 20190501, end: 20190601

REACTIONS (5)
  - Diarrhoea [Unknown]
  - Gastrointestinal pain [Unknown]
  - Constipation [Unknown]
  - Vomiting [Unknown]
  - Flatulence [Unknown]
